FAERS Safety Report 4849742-4 (Version None)
Quarter: 2005Q4

REPORT INFORMATION
  Report Type: 
  Country: None (occurrence: None)
  Receive Date: 20051207
  Receipt Date: 20051205
  Transmission Date: 20060501
  Serious: Yes (Life-Threatening)
  Sender: FDA-Public Use
  Company Number: TCI2005A04881

PATIENT
  Age: 74 Year
  Sex: Male

DRUGS (2)
  1. LEUPROLIDE ACETATE [Suspect]
     Indication: PROSTATE CANCER
     Dosage: 3.75 MG (3.75 MG, 1 IN 28 D), SUBCUTANEOUS
     Route: 058
     Dates: start: 20050823, end: 20050823
  2. FLUTAMIDE [Suspect]
     Indication: PROSTATE CANCER
     Dosage: 375 MG (375 MG, 1 D), PER ORAL
     Route: 048
     Dates: start: 20050706, end: 20051003

REACTIONS (3)
  - APLASTIC ANAEMIA [None]
  - HAEMOLYTIC ANAEMIA [None]
  - METASTASES TO BONE [None]
